FAERS Safety Report 17323613 (Version 5)
Quarter: 2021Q2

REPORT INFORMATION
  Report Type: Other
  Country: GB (occurrence: GB)
  Receive Date: 20200127
  Receipt Date: 20210409
  Transmission Date: 20210716
  Serious: Yes (Hospitalization)
  Sender: FDA-Public Use
  Company Number: GB-ROCHE-2528410

PATIENT
  Sex: Female

DRUGS (9)
  1. ROACTEMRA [Suspect]
     Active Substance: TOCILIZUMAB
     Indication: RHEUMATOID ARTHRITIS
     Route: 058
     Dates: start: 2019
  2. PRIMROSE OIL [Concomitant]
     Dosage: EVENING
  3. CHAMOMILE [Concomitant]
     Active Substance: CHAMOMILE
  4. FOLIC ACID. [Concomitant]
     Active Substance: FOLIC ACID
  5. RAMIPRIL. [Concomitant]
     Active Substance: RAMIPRIL
  6. ROACTEMRA [Suspect]
     Active Substance: TOCILIZUMAB
     Route: 058
     Dates: start: 201906
  7. PARACETAMOL [Concomitant]
     Active Substance: ACETAMINOPHEN
  8. OMEPRAZOLE. [Concomitant]
     Active Substance: OMEPRAZOLE
  9. THYROXINE [Concomitant]
     Active Substance: LEVOTHYROXINE

REACTIONS (4)
  - Blister [Unknown]
  - Feeling abnormal [Unknown]
  - Condition aggravated [Unknown]
  - Localised infection [Unknown]
